FAERS Safety Report 17425115 (Version 2)
Quarter: 2021Q2

REPORT INFORMATION
  Report Type: Spontaneous
  Country: JP (occurrence: JP)
  Receive Date: 20200217
  Receipt Date: 20210516
  Transmission Date: 20210716
  Serious: Yes (Hospitalization, Other)
  Sender: FDA-Public Use
  Company Number: JP-SA-2020SA035483

PATIENT
  Age: 81 Year
  Sex: Male

DRUGS (3)
  1. LANTUS SOLOSTAR [Suspect]
     Active Substance: INSULIN GLARGINE
     Indication: TYPE 2 DIABETES MELLITUS
     Dosage: 16 UNITS/DAY
     Route: 058
     Dates: start: 2011
  2. INSULIN LISPRO [Suspect]
     Active Substance: INSULIN LISPRO
     Indication: TYPE 2 DIABETES MELLITUS
     Dosage: 30 UNITS/DAY
     Route: 065
  3. INSULIN LISPRO [Suspect]
     Active Substance: INSULIN LISPRO
     Dosage: 8 UNITS/DAY
     Route: 065

REACTIONS (3)
  - Secondary amyloidosis [Not Recovered/Not Resolved]
  - Lipohypertrophy [Not Recovered/Not Resolved]
  - Diabetes mellitus inadequate control [Recovered/Resolved]
